FAERS Safety Report 12619231 (Version 1)
Quarter: 2016Q3

REPORT INFORMATION
  Report Type: Spontaneous
  Country: US (occurrence: US)
  Receive Date: 20160803
  Receipt Date: 20160803
  Transmission Date: 20161109
  Serious: Yes (Hospitalization)
  Sender: FDA-Public Use
  Company Number: US-CELGENEUS-USA-2016077743

PATIENT
  Sex: Male
  Weight: 56.75 kg

DRUGS (2)
  1. REVLIMID [Suspect]
     Active Substance: LENALIDOMIDE
     Route: 048
     Dates: start: 20160217
  2. REVLIMID [Suspect]
     Active Substance: LENALIDOMIDE
     Indication: ACUTE FEBRILE NEUTROPHILIC DERMATOSIS
     Route: 048
     Dates: start: 20140630

REACTIONS (2)
  - Lung disorder [Unknown]
  - Pneumonia [Unknown]
